FAERS Safety Report 10661062 (Version 2)
Quarter: 2015Q1

REPORT INFORMATION
  Report Type: Report from Study
  Country: PA (occurrence: PA)
  Receive Date: 20141218
  Receipt Date: 20150112
  Transmission Date: 20150720
  Serious: Yes (Other)
  Sender: FDA-Public Use
  Company Number: PA-ROCHE-1509242

PATIENT
  Age: 48 Year
  Sex: Female

DRUGS (1)
  1. BONVIVA [Suspect]
     Active Substance: IBANDRONATE SODIUM
     Indication: OSTEOPOROSIS
     Route: 042
     Dates: start: 20140222, end: 201403

REACTIONS (7)
  - Bronchitis [Recovered/Resolved]
  - Drug-induced liver injury [Recovered/Resolved]
  - Back pain [Recovered/Resolved]
  - Gingival abscess [Recovered/Resolved]
  - Trigeminal neuralgia [Recovered/Resolved]
  - Tooth fracture [Recovered/Resolved]
  - Rib fracture [Recovered/Resolved]

NARRATIVE: CASE EVENT DATE: 201404
